FAERS Safety Report 4987620-0 (Version None)
Quarter: 2006Q2

REPORT INFORMATION
  Report Type: 
  Country: None (occurrence: None)
  Receive Date: 20060424
  Receipt Date: 20060404
  Transmission Date: 20061013
  Serious: Yes (Other)
  Sender: FDA-Public Use
  Company Number: US200604001278

PATIENT
  Sex: Male

DRUGS (2)
  1. FORTEO [Suspect]
  2. FORTEO [Concomitant]

REACTIONS (4)
  - NEOPLASM MALIGNANT [None]
  - POST PROCEDURAL COMPLICATION [None]
  - RADIATION INJURY [None]
  - SPINAL FRACTURE [None]
